FAERS Safety Report 11211681 (Version 1)
Quarter: 2015Q2

REPORT INFORMATION
  Report Type: Report from Study
  Country: CA (occurrence: CA)
  Receive Date: 20150623
  Receipt Date: 20150623
  Transmission Date: 20150821
  Serious: Yes (Hospitalization)
  Sender: FDA-Public Use
  Company Number: CA-JNJFOC-20150613427

PATIENT
  Age: 28 Year
  Sex: Female
  Weight: 51.8 kg

DRUGS (7)
  1. REMICADE [Suspect]
     Active Substance: INFLIXIMAB
     Indication: CROHN^S DISEASE
     Dosage: 0,2 6 WEEKS
     Route: 042
     Dates: start: 20150616, end: 20150616
  2. SYMBICORT [Concomitant]
     Active Substance: BUDESONIDE\FORMOTEROL FUMARATE DIHYDRATE
     Dosage: 2 INHALATIONS
     Route: 065
  3. REMICADE [Suspect]
     Active Substance: INFLIXIMAB
     Indication: CROHN^S DISEASE
     Route: 042
  4. BENADRYL [Concomitant]
     Active Substance: DIPHENHYDRAMINE HYDROCHLORIDE
     Indication: PREMEDICATION
     Route: 042
  5. ADRENALINE [Concomitant]
     Active Substance: EPINEPHRINE
     Route: 030
  6. TYLENOL [Concomitant]
     Active Substance: ACETAMINOPHEN
     Indication: PREMEDICATION
     Route: 048
  7. AERIUS [Concomitant]
     Active Substance: DESLORATADINE
     Indication: PREMEDICATION
     Route: 048

REACTIONS (9)
  - Throat tightness [Recovering/Resolving]
  - Infusion related reaction [Recovering/Resolving]
  - Pharyngeal oedema [Recovering/Resolving]
  - Hypertension [Recovering/Resolving]
  - Dysphagia [Recovering/Resolving]
  - Hypoaesthesia [Not Recovered/Not Resolved]
  - Heart rate increased [Recovering/Resolving]
  - Panic attack [Not Recovered/Not Resolved]
  - Hypoaesthesia [Recovering/Resolving]

NARRATIVE: CASE EVENT DATE: 20150616
